FAERS Safety Report 9158447 (Version 5)
Quarter: 2013Q4

REPORT INFORMATION
  Report Type: Report from Study
  Country: US (occurrence: US)
  Receive Date: 20130312
  Receipt Date: 20131025
  Transmission Date: 20140711
  Serious: Yes (Hospitalization, Other)
  Sender: FDA-Public Use
  Company Number: US-ALEXION PHARMACEUTICALS INC.-A201300405

PATIENT
  Age: 26 Year
  Sex: Female
  Weight: 83 kg

DRUGS (2)
  1. SOLIRIS [Suspect]
     Indication: PAROXYSMAL NOCTURNAL HAEMOGLOBINURIA
     Dosage: UNK
     Route: 042
  2. SOLIRIS [Suspect]
     Dosage: 1200 MG, Q2W
     Route: 042

REACTIONS (2)
  - Infected dermal cyst [Recovered/Resolved with Sequelae]
  - Incorrect dose administered [Unknown]
